FAERS Safety Report 18180698 (Version 1)
Quarter: 2020Q3

REPORT INFORMATION
  Report Type: Report from Study
  Country: FR (occurrence: FR)
  Receive Date: 20200821
  Receipt Date: 20200821
  Transmission Date: 20201103
  Serious: Yes (Death, Hospitalization, Other)
  Sender: FDA-Public Use
  Company Number: FR-PFIZER INC-2017527474

PATIENT
  Age: 79 Year
  Sex: Male
  Weight: 93 kg

DRUGS (9)
  1. TAMSULOSIN [Concomitant]
     Active Substance: TAMSULOSIN
     Indication: PROSTATIC ADENOMA
     Dosage: UNK
     Route: 048
     Dates: start: 2007
  2. SUTENT [Suspect]
     Active Substance: SUNITINIB MALATE
     Indication: METASTATIC RENAL CELL CARCINOMA
     Dosage: 50 MG, DAILY SCHEME 4/6, 4 WEEKS ON, 2 WEEKS OFF
     Dates: start: 20170123, end: 20170227
  3. COAPROVEL [Concomitant]
     Active Substance: HYDROCHLOROTHIAZIDE\IRBESARTAN
     Indication: HYPERTENSION
     Dosage: UNK
     Route: 048
     Dates: start: 20170522, end: 20180305
  4. SUTENT [Suspect]
     Active Substance: SUNITINIB MALATE
     Dosage: 37.5 MG, 2 WEEKS ON/1 WEEK OFF
     Dates: start: 20171017, end: 20180216
  5. BISOPROLOL [Concomitant]
     Active Substance: BISOPROLOL
     Indication: HYPERTENSION
     Dosage: UNK
     Route: 048
     Dates: start: 1997
  6. MOPRAL [OMEPRAZOLE] [Concomitant]
     Active Substance: OMEPRAZOLE
     Indication: GASTROOESOPHAGEAL REFLUX DISEASE
     Dosage: UNK
     Route: 048
     Dates: start: 20170522
  7. SUTENT [Suspect]
     Active Substance: SUNITINIB MALATE
     Dosage: 50 MG, DAILY, SCHEME 2/3, 2 WEEKS ON, 1 WEEK OFF
     Dates: start: 20170227
  8. KARDEGIC [Concomitant]
     Active Substance: ASPIRIN DL-LYSINE
     Dosage: UNK
     Dates: start: 20171219, end: 20180305
  9. NIVOLUMAB [Concomitant]
     Active Substance: NIVOLUMAB
     Indication: RENAL CANCER
     Dosage: UNK
     Route: 042
     Dates: start: 20180404, end: 20180822

REACTIONS (30)
  - General physical health deterioration [Fatal]
  - Thrombocytopenia [Recovered/Resolved]
  - Eye swelling [Recovered/Resolved]
  - Discomfort [Unknown]
  - Eyelid oedema [Unknown]
  - Dyspepsia [Unknown]
  - Epistaxis [Recovered/Resolved]
  - Asthenia [Recovered/Resolved]
  - Diarrhoea [Not Recovered/Not Resolved]
  - Fatigue [Unknown]
  - Rash [Unknown]
  - Abdominal pain upper [Unknown]
  - Gastrointestinal toxicity [Unknown]
  - Urinary tract disorder [Unknown]
  - Conjunctivitis [Unknown]
  - Dyspnoea [Recovered/Resolved]
  - Gastrooesophageal reflux disease [Unknown]
  - Back pain [Not Recovered/Not Resolved]
  - Fatigue [Not Recovered/Not Resolved]
  - Tachyarrhythmia [Recovered/Resolved]
  - Lacrimation increased [Unknown]
  - Constipation [Unknown]
  - Asthenia [Recovered/Resolved]
  - Pyrexia [Not Recovered/Not Resolved]
  - Breast pain [Recovered/Resolved]
  - Anal inflammation [Recovered/Resolved]
  - Palmar-plantar erythrodysaesthesia syndrome [Not Recovered/Not Resolved]
  - Epistaxis [Recovered/Resolved with Sequelae]
  - Anaemia [Recovered/Resolved]
  - Bone pain [Unknown]

NARRATIVE: CASE EVENT DATE: 20170206
